FAERS Safety Report 4853326-1 (Version None)
Quarter: 2005Q4

REPORT INFORMATION
  Report Type: 
  Country: None (occurrence: None)
  Receive Date: 20051214
  Receipt Date: 20051208
  Transmission Date: 20060501
  Serious: Yes (Death)
  Sender: FDA-Public Use
  Company Number: JP-JPN-A20053020

PATIENT
  Sex: Female

DRUGS (2)
  1. MODACIN [Suspect]
     Indication: PYELONEPHRITIS
     Route: 042
  2. GENTACIN [Concomitant]
     Indication: PYELONEPHRITIS
     Route: 065

REACTIONS (2)
  - AMYLOIDOSIS [None]
  - ENTEROCOLITIS HAEMORRHAGIC [None]
